FAERS Safety Report 16309156 (Version 8)
Quarter: 2021Q1

REPORT INFORMATION
  Report Type: Spontaneous
  Country: JP (occurrence: JP)
  Receive Date: 20190514
  Receipt Date: 20210215
  Transmission Date: 20210419
  Serious: Yes (Hospitalization, Other)
  Sender: FDA-Public Use
  Company Number: JP-BRISTOL-MYERS SQUIBB COMPANY-BMS-2019-046350

PATIENT
  Age: 77 Year
  Sex: Male
  Weight: 61.9 kg

DRUGS (7)
  1. FOIPAN [Suspect]
     Active Substance: CAMOSTAT MESYLATE
     Indication: PRODUCT USED FOR UNKNOWN INDICATION
     Dosage: UNK
     Route: 048
  2. CEFCAPENE PIVOXIL HYDROCHLORIDE [Concomitant]
     Active Substance: CEFCAPENE PIVOXIL HYDROCHLORIDE
     Indication: PRODUCT USED FOR UNKNOWN INDICATION
     Dosage: UNK
     Route: 065
  3. OPDIVO [Suspect]
     Active Substance: NIVOLUMAB
     Indication: METASTATIC RENAL CELL CARCINOMA
     Dosage: 179 MILLIGRAM
     Route: 041
     Dates: start: 20180111, end: 20180125
  4. OPDIVO [Suspect]
     Active Substance: NIVOLUMAB
     Dosage: 180 MILLIGRAM
     Route: 041
     Dates: start: 20180208, end: 20180426
  5. AZUNOL GARGLE LIQUID [Concomitant]
     Indication: PRODUCT USED FOR UNKNOWN INDICATION
     Dosage: UNK
     Route: 049
  6. NEXIUM [Concomitant]
     Active Substance: ESOMEPRAZOLE MAGNESIUM
     Indication: PRODUCT USED FOR UNKNOWN INDICATION
     Dosage: UNK
     Route: 048
  7. AMLODIPINE [Concomitant]
     Active Substance: AMLODIPINE BESYLATE
     Indication: HYPERTENSION
     Dosage: UNK
     Route: 065

REACTIONS (7)
  - Sialoadenitis [Recovered/Resolved]
  - Autoimmune pancreatitis [Recovered/Resolved]
  - Pneumonia [Not Recovered/Not Resolved]
  - Dry eye [Not Recovered/Not Resolved]
  - Prescribed underdose [Unknown]
  - Congestive cardiomyopathy [Unknown]
  - Autoimmune thyroiditis [Not Recovered/Not Resolved]

NARRATIVE: CASE EVENT DATE: 20180502
